FAERS Safety Report 5171166-3 (Version None)
Quarter: 2006Q4

REPORT INFORMATION
  Report Type: 
  Country: None (occurrence: None)
  Receive Date: 20061207
  Receipt Date: 20061207
  Transmission Date: 20070319
  Serious: Yes (Other)
  Sender: FDA-Public Use
  Company Number: None

PATIENT
  Age: 81 Year
  Sex: Male
  Weight: 90.7194 kg

DRUGS (2)
  1. LEVAQUIN [Suspect]
     Indication: URINARY TRACT INFECTION
     Dosage: ONCE / DAY ORAL
     Route: 048
     Dates: start: 20061003
  2. LEVAQUIN [Suspect]
     Indication: URINARY TRACT INFECTION
     Dosage: 250 MG ONCE/DAY ORAL
     Route: 048
     Dates: start: 20061109, end: 20061111

REACTIONS (3)
  - DYSPNOEA EXERTIONAL [None]
  - MUSCULAR WEAKNESS [None]
  - MYALGIA [None]
